FAERS Safety Report 7683575-9 (Version None)
Quarter: 2011Q3

REPORT INFORMATION
  Report Type: 
  Country: None (occurrence: None)
  Receive Date: 20110815
  Receipt Date: 20110804
  Transmission Date: 20111222
  Serious: Yes (Other)
  Sender: FDA-Public Use
  Company Number: SE-JNJFOC-20110803542

PATIENT
  Age: 84 Year
  Sex: Male

DRUGS (1)
  1. REMICADE [Suspect]
     Indication: PYODERMA
     Route: 042
     Dates: start: 20110101

REACTIONS (2)
  - METASTASES TO BONE [None]
  - NEOPLASM MALIGNANT [None]
